FAERS Safety Report 4974895-7 (Version None)
Quarter: 2006Q1

REPORT INFORMATION
  Report Type: 
  Country: None (occurrence: None)
  Receive Date: 20060227
  Receipt Date: 20060126
  Transmission Date: 20060701
  Serious: No
  Sender: FDA-Public Use
  Company Number: PHEH2006US01439

PATIENT
  Sex: Male

DRUGS (4)
  1. ENABLEX [Suspect]
     Indication: HYPERTONIC BLADDER
     Dosage: 7.5 MG QD
     Dates: start: 20051227
  2. LISINOPRIL [Concomitant]
  3. DIGOXIN [Concomitant]
  4. INDERAL [Concomitant]

REACTIONS (1)
  - POLLAKIURIA [None]
